FAERS Safety Report 9829226 (Version 1)
Quarter: 2014Q1

REPORT INFORMATION
  Report Type: Spontaneous
  Country: GB (occurrence: GB)
  Receive Date: 20140119
  Receipt Date: 20140119
  Transmission Date: 20141002
  Serious: Yes (Death, Life-Threatening, Other)
  Sender: FDA-Public Use
  Company Number: GB-ROCHE-1334650

PATIENT
  Age: 90 Year
  Sex: Male

DRUGS (8)
  1. ACTILYSE [Suspect]
     Indication: CEREBROVASCULAR ACCIDENT
     Dosage: 1MG/ML BOLUS OF 8ML OVER 2 MINS FOLLOWED BY 68ML/HR
     Route: 040
  2. ATORVASTATIN [Concomitant]
     Route: 048
  3. BENDROFLUMETHIAZIDE [Concomitant]
  4. DIPYRIDAMOLE [Concomitant]
     Route: 048
  5. DONEPEZIL [Concomitant]
     Route: 048
  6. FERROUS SULPHATE [Concomitant]
  7. OMEPRAZOLE [Concomitant]
     Route: 048
  8. RAMIPRIL [Concomitant]
     Route: 048

REACTIONS (2)
  - Death [Fatal]
  - Anaphylactic reaction [Recovered/Resolved]
